FAERS Safety Report 6170889-7 (Version None)
Quarter: 2009Q2

REPORT INFORMATION
  Report Type: 
  Country: None (occurrence: None)
  Receive Date: 20090427
  Receipt Date: 20090413
  Transmission Date: 20091009
  Serious: Yes (Death, Other)
  Sender: FDA-Public Use
  Company Number: MC200900099

PATIENT

DRUGS (4)
  1. ANGIOMAX [Suspect]
     Indication: PERCUTANEOUS CORONARY INTERVENTION
  2. CLOPIDOGREL [Concomitant]
  3. ASPIRIN [Concomitant]
  4. GP IIB/IIIA INHIBITOR [Concomitant]

REACTIONS (3)
  - CORONARY REVASCULARISATION [None]
  - HAEMORRHAGE [None]
  - MYOCARDIAL INFARCTION [None]
